FAERS Safety Report 11235225 (Version 2)
Quarter: 2015Q3

REPORT INFORMATION
  Report Type: Spontaneous
  Country: JP (occurrence: JP)
  Receive Date: 20150702
  Receipt Date: 20150817
  Transmission Date: 20151125
  Serious: Yes (Other)
  Sender: FDA-Public Use
  Company Number: JP-MALLINCKRODT-T201404367

PATIENT
  Age: 61 Year
  Sex: Female

DRUGS (26)
  1. METHADONE [Suspect]
     Active Substance: METHADONE HYDROCHLORIDE
     Dosage: 10 MG, (30 MG DAILY DOSE)
     Route: 048
     Dates: start: 20150105, end: 20150128
  2. LYRICA [Concomitant]
     Active Substance: PREGABALIN
     Dosage: 300 MG
     Route: 048
     Dates: end: 20150127
  3. KETALAR [Concomitant]
     Active Substance: KETAMINE HYDROCHLORIDE
     Dosage: 10 - 30 MG, PRN
     Route: 048
     Dates: start: 20141211
  4. DEPAKENE [Concomitant]
     Active Substance: VALPROIC ACID
     Dosage: 200 MG
     Route: 048
     Dates: start: 20141218, end: 20141223
  5. ZYPREXA [Concomitant]
     Active Substance: OLANZAPINE
     Dosage: 2.5 MG
     Route: 048
     Dates: start: 20150123, end: 20150127
  6. METHADONE [Suspect]
     Active Substance: METHADONE HYDROCHLORIDE
     Dosage: 5 MG, (5 MG DAILY DOSE)
     Route: 048
     Dates: start: 20141115, end: 20141121
  7. METHADONE [Suspect]
     Active Substance: METHADONE HYDROCHLORIDE
     Dosage: 10 MG, (20 MG DAILY DOSE)
     Route: 048
     Dates: start: 20141211, end: 20150104
  8. OXINORM [Concomitant]
     Active Substance: OXYCODONE HYDROCHLORIDE
     Dosage: 5 - 10 MG, PRN
     Route: 048
     Dates: start: 20141211
  9. VOLTAREN [Concomitant]
     Active Substance: DICLOFENAC SODIUM
     Dosage: 75 MG
     Route: 048
     Dates: end: 20150127
  10. DECADRON [Concomitant]
     Active Substance: DEXAMETHASONE
     Dosage: 3.3 MG
     Route: 029
     Dates: start: 20150114, end: 20150121
  11. HIBERNA [Concomitant]
     Active Substance: PROMETHAZINE HYDROCHLORIDE
     Dosage: 25 MG
  12. METHADONE [Suspect]
     Active Substance: METHADONE HYDROCHLORIDE
     Indication: CANCER PAIN
     Dosage: 5 MG, (15 MG DAILY DOSE)
     Route: 048
     Dates: start: 20141112, end: 20141114
  13. MAGMITT [Concomitant]
     Active Substance: MAGNESIUM OXIDE
     Dosage: 990 MG
     Route: 048
     Dates: end: 20150127
  14. RIVOTRIL [Concomitant]
     Active Substance: CLONAZEPAM
     Dosage: 0.5 MG
     Route: 048
     Dates: end: 20150127
  15. METHADONE [Suspect]
     Active Substance: METHADONE HYDROCHLORIDE
     Dosage: 5 MG, (10 MG DAILY DOSE)
     Route: 048
     Dates: start: 20141122, end: 20141130
  16. CYTOTEC [Concomitant]
     Active Substance: MISOPROSTOL
     Dosage: 800 ?G
     Route: 065
     Dates: end: 20150127
  17. KEFPOLIN [Concomitant]
     Dosage: 750 MG
     Route: 048
     Dates: start: 20141120, end: 20141125
  18. XYLOCAINE FOR INTRAVENOUS INJECTION [Concomitant]
     Dosage: 100 MG
     Route: 042
     Dates: start: 20141224, end: 20150105
  19. MARCAIN [Concomitant]
     Active Substance: BUPIVACAINE HYDROCHLORIDE
     Dosage: 20 MG
     Route: 029
     Dates: start: 20150114, end: 20150121
  20. MORPHINE HYDROCHLORIDE [Suspect]
     Active Substance: MORPHINE HYDROCHLORIDE
     Indication: PRODUCT USED FOR UNKNOWN INDICATION
     Dosage: 0.25 MG/H
     Route: 051
     Dates: start: 20150130
  21. LANSOPRAZOLE. [Concomitant]
     Active Substance: LANSOPRAZOLE
     Dosage: 15 MG
     Route: 048
     Dates: end: 20150127
  22. BACTRAMIN [Concomitant]
     Active Substance: SULFAMETHOXAZOLE\TRIMETHOPRIM
     Dosage: 1 DF
     Route: 048
     Dates: start: 20150114, end: 20150127
  23. METHADONE [Suspect]
     Active Substance: METHADONE HYDROCHLORIDE
     Dosage: 5 MG, (15 MG DAILY DOSE)
     Route: 048
     Dates: start: 20141201, end: 20141210
  24. DECADRON [Concomitant]
     Active Substance: DEXAMETHASONE
     Dosage: 2 MG
     Route: 048
     Dates: end: 20150113
  25. ZYPREXA [Concomitant]
     Active Substance: OLANZAPINE
     Dosage: 1.25 MG
     Route: 048
     Dates: start: 20150126
  26. CONTOMIN [Concomitant]
     Active Substance: CHLORPROMAZINE
     Dosage: 25 MG
     Route: 051

REACTIONS (5)
  - Respiratory depression [Recovered/Resolved]
  - Haematuria [Not Recovered/Not Resolved]
  - Delirium [Not Recovered/Not Resolved]
  - Vomiting [Recovered/Resolved]
  - Subcutaneous abscess [Not Recovered/Not Resolved]

NARRATIVE: CASE EVENT DATE: 20141115
